FAERS Safety Report 5537380-X (Version None)
Quarter: 2007Q4

REPORT INFORMATION
  Report Type: 
  Country: None (occurrence: None)
  Receive Date: 20071207
  Receipt Date: 20071203
  Transmission Date: 20080405
  Serious: Yes (Disabling)
  Sender: FDA-Public Use
  Company Number: A0696987A

PATIENT
  Age: 70 Year
  Sex: Male

DRUGS (2)
  1. ADVAIR DISKUS 100/50 [Suspect]
     Indication: DRUG USE FOR UNKNOWN INDICATION
     Dosage: 1PUFF TWICE PER DAY
     Route: 055
     Dates: start: 20070501, end: 20071101
  2. MULTIPLE MEDICATIONS [Concomitant]

REACTIONS (7)
  - BLOOD PRESSURE FLUCTUATION [None]
  - DYSPNOEA [None]
  - HEADACHE [None]
  - LACRIMATION INCREASED [None]
  - LYMPHADENOPATHY [None]
  - SINUS CONGESTION [None]
  - VISION BLURRED [None]
